FAERS Safety Report 25616225 (Version 1)
Quarter: 2025Q3

REPORT INFORMATION
  Report Type: Spontaneous
  Country: US (occurrence: US)
  Receive Date: 20250729
  Receipt Date: 20250729
  Transmission Date: 20251020
  Serious: No
  Sender: CSL Plasma
  Company Number: US-CSLP-70109616866-V10581716-10

PATIENT
  Age: 27 Year
  Sex: Female

DRUGS (3)
  1. ANTICOAGULANT SODIUM CITRATE [Suspect]
     Active Substance: SODIUM CITRATE
     Indication: Anticoagulant therapy
     Route: 050
     Dates: start: 20250709, end: 20250709
  2. VITAMINS [Concomitant]
     Active Substance: VITAMINS
     Indication: Product used for unknown indication
  3. TRAZODONE [Concomitant]
     Active Substance: TRAZODONE HYDROCHLORIDE

REACTIONS (13)
  - Vessel puncture site haematoma [Recovered/Resolved]
  - Muscle spasms [Recovered/Resolved]
  - Skin induration [Recovered/Resolved]
  - Pain in extremity [Recovered/Resolved]
  - Injection site nodule [Recovered/Resolved]
  - Tetany [Recovered/Resolved]
  - Restlessness [Recovered/Resolved]
  - Hypoaesthesia [Recovered/Resolved]
  - Paraesthesia [Recovered/Resolved]
  - Vessel puncture site bruise [Recovered/Resolved]
  - Peripheral coldness [Recovered/Resolved]
  - Muscle contracture [Recovered/Resolved]
  - Tremor [Recovered/Resolved]

NARRATIVE: CASE EVENT DATE: 20250709
